FAERS Safety Report 8916251 (Version 1)
Quarter: 2012Q4

REPORT INFORMATION
  Report Type: Report from Study
  Country: SG (occurrence: SG)
  Receive Date: 20121120
  Receipt Date: 20121120
  Transmission Date: 20130627
  Serious: Yes (Hospitalization)
  Sender: FDA-Public Use
  Company Number: SG-GLAXOSMITHKLINE-B0846167A

PATIENT
  Age: 48 Year
  Sex: Female

DRUGS (5)
  1. LAPATINIB [Suspect]
     Indication: BREAST CANCER
     Dosage: 750MG per day
     Route: 048
     Dates: start: 20120403, end: 20120711
  2. PACLITAXEL [Suspect]
     Indication: BREAST CANCER
     Dosage: 146MG per day
     Route: 042
     Dates: start: 20120403, end: 20120620
  3. CARBOPLATIN [Suspect]
     Indication: BREAST CANCER
     Dosage: 300MG per day
     Dates: start: 20120403, end: 20120711
  4. DOXORUBICIN [Suspect]
     Indication: BREAST CANCER
     Dosage: 110MG per day
     Route: 042
     Dates: start: 20120815, end: 20121031
  5. CYCLOPHOSPHAMIDE [Suspect]
     Indication: BREAST CANCER
     Dosage: 1100MG per day
     Dates: start: 20120815, end: 20121031

REACTIONS (1)
  - Febrile neutropenia [Not Recovered/Not Resolved]
